FAERS Safety Report 7230066-5 (Version None)
Quarter: 2011Q1

REPORT INFORMATION
  Report Type: 
  Country: None (occurrence: None)
  Receive Date: 20110118
  Receipt Date: 20110107
  Transmission Date: 20110831
  Serious: No
  Sender: FDA-Public Use
  Company Number: US-BIOGENIDEC-2010BI020562

PATIENT
  Sex: Female

DRUGS (3)
  1. TYSABRI [Suspect]
     Route: 042
     Dates: start: 20101008
  2. TYSABRI [Suspect]
     Indication: MULTIPLE SCLEROSIS
     Route: 042
     Dates: start: 20090708, end: 20100113
  3. MOTION SICKNESS PILLS [Concomitant]
     Indication: DIZZINESS

REACTIONS (7)
  - VISUAL IMPAIRMENT [None]
  - FATIGUE [None]
  - ASTHENIA [None]
  - DRUG INEFFECTIVE [None]
  - FEELING COLD [None]
  - TREMOR [None]
  - FALL [None]
